FAERS Safety Report 12717815 (Version 1)
Quarter: 2016Q3

REPORT INFORMATION
  Report Type: Spontaneous
  Country: US (occurrence: US)
  Receive Date: 20160906
  Receipt Date: 20160906
  Transmission Date: 20161109
  Serious: Yes (Death)
  Sender: FDA-Public Use
  Company Number: US-PFIZER INC-2016414813

PATIENT
  Age: 70 Year
  Sex: Male
  Weight: 75 kg

DRUGS (1)
  1. RAPAMUNE [Suspect]
     Active Substance: SIROLIMUS
     Indication: LIVER TRANSPLANT
     Dosage: 2 DF, 1X/DAY
     Route: 048
     Dates: start: 2003

REACTIONS (2)
  - Neoplasm malignant [Fatal]
  - Product use issue [Unknown]

NARRATIVE: CASE EVENT DATE: 201604
